FAERS Safety Report 13819652 (Version 1)
Quarter: 2017Q3

REPORT INFORMATION
  Report Type: Report from Study
  Country: US (occurrence: US)
  Receive Date: 20170731
  Receipt Date: 20170731
  Transmission Date: 20171127
  Serious: No
  Sender: FDA-Public Use
  Company Number: US-EXELIXIS-CABO-17008661

PATIENT
  Sex: Male

DRUGS (23)
  1. FISH OIL [Concomitant]
     Active Substance: FISH OIL
  2. HYDRALAZINE HCL [Concomitant]
     Active Substance: HYDRALAZINE HYDROCHLORIDE
  3. LISINOPRIL. [Concomitant]
     Active Substance: LISINOPRIL
  4. CABOMETYX [Suspect]
     Active Substance: CABOZANTINIB S-MALATE
     Indication: METASTASES TO LUNG
  5. SODIUM BICARBONATE. [Concomitant]
     Active Substance: SODIUM BICARBONATE
  6. PREDNISONE. [Concomitant]
     Active Substance: PREDNISONE
  7. LOPERAMIDE [Concomitant]
     Active Substance: LOPERAMIDE
  8. CYANOCOBALAMIN. [Concomitant]
     Active Substance: CYANOCOBALAMIN
  9. ASCORBIC ACID. [Concomitant]
     Active Substance: ASCORBIC ACID
  10. ROSUVASTATIN CALCIUM. [Concomitant]
     Active Substance: ROSUVASTATIN CALCIUM
  11. ENBREL [Concomitant]
     Active Substance: ETANERCEPT
  12. FIBER [Concomitant]
     Active Substance: PSYLLIUM HUSK
  13. LACTOBACILLUS [Concomitant]
     Active Substance: LACTOBACILLUS ACIDOPHILUS
  14. PROCHLORPERAZINE. [Concomitant]
     Active Substance: PROCHLORPERAZINE
  15. LEVOTHYROXIN [Concomitant]
     Active Substance: LEVOTHYROXINE
  16. ASPIRIN. [Concomitant]
     Active Substance: ASPIRIN
  17. METOPROLOL SUCCINATE. [Concomitant]
     Active Substance: METOPROLOL SUCCINATE
  18. CHOLECALCIFEROL [Concomitant]
     Active Substance: CHOLECALCIFEROL
  19. OPDIVO [Concomitant]
     Active Substance: NIVOLUMAB
  20. DIPHENOXYLATE/ATROPINE [Concomitant]
     Active Substance: ATROPINE\DIPHENOXYLATE
  21. AMLODIPINE [Concomitant]
     Active Substance: AMLODIPINE BESYLATE
  22. CABOMETYX [Suspect]
     Active Substance: CABOZANTINIB S-MALATE
     Indication: RENAL CANCER
     Dosage: 40 MG, QD
     Route: 048
     Dates: start: 20170131
  23. FUROSEMIDE. [Concomitant]
     Active Substance: FUROSEMIDE

REACTIONS (7)
  - Arthritis [Unknown]
  - Fatigue [Not Recovered/Not Resolved]
  - Drug ineffective [Unknown]
  - Blister [Recovering/Resolving]
  - Diarrhoea [Recovering/Resolving]
  - Rash [Not Recovered/Not Resolved]
  - Decreased appetite [Unknown]
